FAERS Safety Report 10555009 (Version 2)
Quarter: 2014Q4

REPORT INFORMATION
  Report Type: Spontaneous
  Country: JP (occurrence: JP)
  Receive Date: 20141030
  Receipt Date: 20141114
  Transmission Date: 20150529
  Serious: Yes (Life-Threatening, Other)
  Sender: FDA-Public Use
  Company Number: JP-PFIZER INC-2014296106

PATIENT
  Sex: Female

DRUGS (2)
  1. ESTRIEL [Concomitant]
     Active Substance: ESTRIOL
  2. PROVERA [Suspect]
     Active Substance: MEDROXYPROGESTERONE ACETATE
     Indication: MENOPAUSAL SYMPTOMS
     Route: 048

REACTIONS (1)
  - Hepatic cancer [Unknown]
